FAERS Safety Report 13864485 (Version 2)
Quarter: 2017Q4

REPORT INFORMATION
  Report Type: Spontaneous
  Country: FR (occurrence: FR)
  Receive Date: 20170814
  Receipt Date: 20171124
  Transmission Date: 20180320
  Serious: Yes (Death)
  Sender: FDA-Public Use
  Company Number: FR-ACTELION-A-CH2017-157561

PATIENT
  Age: 52 Year
  Sex: Female

DRUGS (3)
  1. REVATIO [Concomitant]
     Active Substance: SILDENAFIL CITRATE
     Indication: PULMONARY ARTERIAL HYPERTENSION
     Dosage: 20 MG, TID
     Route: 048
     Dates: start: 2008, end: 20170426
  2. VOLIBRIS [Concomitant]
     Active Substance: AMBRISENTAN
     Indication: PULMONARY ARTERIAL HYPERTENSION
     Dosage: 18 MG, OD
     Route: 048
     Dates: start: 2011, end: 20170426
  3. VELETRI [Suspect]
     Active Substance: EPOPROSTENOL
     Indication: PULMONARY ARTERIAL HYPERTENSION
     Dosage: 1.5 MG, UNK
     Route: 042
     Dates: start: 20160523, end: 20170426

REACTIONS (6)
  - Disease progression [Fatal]
  - Cardiac failure [Fatal]
  - HIV infection [Fatal]
  - Bradyphrenia [Fatal]
  - Pulmonary arterial hypertension [Fatal]
  - Dysarthria [Fatal]

NARRATIVE: CASE EVENT DATE: 20170419
